FAERS Safety Report 8471919-X (Version None)
Quarter: 2012Q2

REPORT INFORMATION
  Report Type: 
  Country: None (occurrence: None)
  Receive Date: 20120627
  Receipt Date: 20120619
  Transmission Date: 20120825
  Serious: Yes (Hospitalization)
  Sender: FDA-Public Use
  Company Number: US-BAYER-2012-062296

PATIENT
  Age: 46 Year
  Sex: Female
  Weight: 63.492 kg

DRUGS (8)
  1. ESTROVEN [Concomitant]
  2. YAZ [Suspect]
  3. EFFEXOR XR [Concomitant]
     Dosage: 37.5 [TIMES] 7 D (INTERPRETED AS DAYS)
     Route: 048
  4. IBUPROFEN (ADVIL) [Concomitant]
     Route: 048
  5. DILAUDID [Concomitant]
     Indication: NAUSEA
  6. ESTROGEN [Concomitant]
  7. MUSCLE RELAXANT [Concomitant]
     Route: 048
  8. PHENERGAN [Concomitant]
     Indication: NAUSEA

REACTIONS (1)
  - PULMONARY EMBOLISM [None]
